FAERS Safety Report 8532712-2 (Version None)
Quarter: 2012Q3

REPORT INFORMATION
  Report Type: 
  Country: None (occurrence: None)
  Receive Date: 20120724
  Receipt Date: 20120717
  Transmission Date: 20120928
  Serious: No
  Sender: FDA-Public Use
  Company Number: PHHY2012JP051343

PATIENT
  Age: 15 Year
  Sex: Female

DRUGS (1)
  1. NEORAL [Suspect]
     Indication: APLASTIC ANAEMIA
     Dosage: 100 MG, DAILY
     Route: 048
     Dates: start: 20120201

REACTIONS (2)
  - GAIT DISTURBANCE [None]
  - ORTHOSTATIC HYPOTENSION [None]
